FAERS Safety Report 4796882-4 (Version None)
Quarter: 2005Q4

REPORT INFORMATION
  Report Type: 
  Country: None (occurrence: None)
  Receive Date: 20051006
  Receipt Date: 20051006
  Transmission Date: 20060501
  Serious: Yes (Hospitalization)
  Sender: FDA-Public Use
  Company Number: None

PATIENT
  Age: 58 Year
  Sex: Female
  Weight: 88 kg

DRUGS (8)
  1. WARFARIN [Suspect]
     Indication: THROMBOSIS PROPHYLAXIS
     Dosage: 5 MG PO QD
     Route: 048
  2. LEVAQUIN [Concomitant]
  3. ASPIRIN [Concomitant]
  4. PHENOBARB [Concomitant]
  5. ZANTAC [Concomitant]
  6. PROZAC [Concomitant]
  7. XANAX [Concomitant]
  8. AMIODARONE [Concomitant]

REACTIONS (4)
  - COUGH [None]
  - INTERNATIONAL NORMALISED RATIO INCREASED [None]
  - PLEURITIC PAIN [None]
  - UPPER RESPIRATORY TRACT INFECTION [None]
